FAERS Safety Report 13133943 (Version 3)
Quarter: 2017Q1

REPORT INFORMATION
  Report Type: Report from Study
  Country: GB (occurrence: GB)
  Receive Date: 20170120
  Receipt Date: 20170131
  Transmission Date: 20170428
  Serious: No
  Sender: FDA-Public Use
  Company Number: GB-JNJFOC-20161222967

PATIENT
  Sex: Female

DRUGS (1)
  1. STELARA [Suspect]
     Active Substance: USTEKINUMAB
     Indication: PSORIASIS
     Route: 058

REACTIONS (10)
  - Diarrhoea [Recovered/Resolved]
  - Vomiting [Recovered/Resolved]
  - Inappropriate schedule of drug administration [Unknown]
  - Arthralgia [Recovered/Resolved]
  - Malaise [Recovered/Resolved]
  - Grip strength decreased [Recovered/Resolved]
  - Injection site mass [Unknown]
  - Off label use [Unknown]
  - Psoriasis [Recovered/Resolved]
  - Injection site pain [Unknown]
